FAERS Safety Report 8829958 (Version 1)
Quarter: 2012Q4

REPORT INFORMATION
  Report Type: 
  Country: US (occurrence: US)
  Receive Date: 20121008
  Receipt Date: 20121008
  Transmission Date: 20130627
  Serious: No
  Sender: FDA-Public Use
  Company Number: PHEH2012US019454

PATIENT
  Age: 77 Year
  Sex: Female

DRUGS (9)
  1. TASIGNA [Suspect]
     Indication: CHRONIC MYELOID LEUKAEMIA
     Dosage: 200 mg, BID
     Route: 048
     Dates: start: 20120403
  2. ASA [Concomitant]
  3. FLUOXETINE [Concomitant]
  4. FUROSEMIDE [Concomitant]
  5. MELOXICAM [Concomitant]
  6. NIZATIDINE [Concomitant]
  7. OMEPRAZOLE [Concomitant]
  8. QUINAPRIL [Concomitant]
  9. TRAZODONE [Concomitant]

REACTIONS (1)
  - Labelled drug-food interaction medication error [Unknown]
